FAERS Safety Report 6584486-2 (Version None)
Quarter: 2010Q1

REPORT INFORMATION
  Report Type: 
  Country: None (occurrence: None)
  Receive Date: 20100213
  Receipt Date: 20100213
  Transmission Date: 20100710
  Serious: Yes (Life-Threatening, Other)
  Sender: FDA-Public Use
  Company Number: None

PATIENT
  Age: 4 Year
  Sex: Female
  Weight: 73.4827 kg

DRUGS (2)
  1. VENLAFAXINE [Suspect]
     Indication: ANXIETY
     Dosage: 1 TABLET THREE TIMES A DAY PO
     Route: 048
     Dates: start: 20070101
  2. VENLAFAXINE [Suspect]
     Indication: DEPRESSION
     Dosage: 1 TABLET THREE TIMES A DAY PO
     Route: 048
     Dates: start: 20070101

REACTIONS (3)
  - CONVULSION [None]
  - HEART RATE DECREASED [None]
  - PRODUCT QUALITY ISSUE [None]
